FAERS Safety Report 5076037-9 (Version None)
Quarter: 2006Q3

REPORT INFORMATION
  Report Type: 
  Country: None (occurrence: None)
  Receive Date: 20060809
  Receipt Date: 20060802
  Transmission Date: 20061208
  Serious: Yes (Death)
  Sender: FDA-Public Use
  Company Number: US-BOEHRINGER INGELHEIM PHARMACEUTICALS, INC.-2006-DE-04068GD

PATIENT
  Age: 78 Year
  Sex: Male

DRUGS (1)
  1. PRAMIPEXOLE DIHYDROCHLORIDE [Suspect]
     Indication: RAPID EYE MOVEMENTS SLEEP ABNORMAL

REACTIONS (3)
  - COGNITIVE DISORDER [None]
  - DEATH [None]
  - HALLUCINATION [None]
